FAERS Safety Report 22155026 (Version 2)
Quarter: 2023Q2

REPORT INFORMATION
  Report Type: Spontaneous
  Country: JP (occurrence: JP)
  Receive Date: 20230330
  Receipt Date: 20230403
  Transmission Date: 20230722
  Serious: Yes (Death, Other)
  Sender: FDA-Public Use
  Company Number: JP-GSKJP-JP2023JPN030559AA

PATIENT

DRUGS (2)
  1. ATOVAQUONE [Suspect]
     Active Substance: ATOVAQUONE
     Indication: Prophylaxis
     Dosage: 750 MG, QD
  2. ATOVAQUONE [Suspect]
     Active Substance: ATOVAQUONE
     Dosage: 750 MG, QD, IN THE MORNING

REACTIONS (3)
  - Death [Fatal]
  - Prescribed underdose [Unknown]
  - Intercepted product prescribing error [Unknown]
